FAERS Safety Report 6312472-6 (Version None)
Quarter: 2009Q3

REPORT INFORMATION
  Report Type: 
  Country: None (occurrence: None)
  Receive Date: 20090813
  Receipt Date: 20090709
  Transmission Date: 20100115
  Serious: Yes (Other)
  Sender: FDA-Public Use
  Company Number: AVE_00753_2009

PATIENT
  Sex: Female
  Weight: 95.2 kg

DRUGS (1)
  1. NICOTINE [Suspect]
     Indication: SMOKING CESSATION THERAPY
     Dosage: 14 MG 1X TRANSDERMAL
     Route: 062
     Dates: start: 20081227, end: 20081227

REACTIONS (7)
  - ACCIDENTAL OVERDOSE [None]
  - DRUG DELIVERY SYSTEM MALFUNCTION [None]
  - HEART RATE INCREASED [None]
  - HYPOAESTHESIA FACIAL [None]
  - NAUSEA [None]
  - PARAESTHESIA [None]
  - PRODUCT QUALITY ISSUE [None]
